FAERS Safety Report 8625001-9 (Version None)
Quarter: 2012Q3

REPORT INFORMATION
  Report Type: 
  Country: None (occurrence: None)
  Receive Date: 20120827
  Receipt Date: 20120815
  Transmission Date: 20120928
  Serious: Yes (Hospitalization, Disabling, Other)
  Sender: FDA-Public Use
  Company Number: US-009507513-1106USA03365

PATIENT

DRUGS (11)
  1. FOSAMAX [Suspect]
     Dosage: 70 MG, QW
     Route: 048
     Dates: start: 20080501, end: 20100617
  2. CALCIUM (UNSPECIFIED) [Concomitant]
     Dosage: 1 DF, QD
     Dates: start: 19960101
  3. FOSAMAX [Suspect]
     Indication: OSTEOPENIA
     Dosage: 70  MG, QW
     Route: 048
     Dates: start: 20050404, end: 20080517
  4. FOSAMAX [Suspect]
     Indication: OSTEOPOROSIS
  5. ACTONEL [Suspect]
     Indication: OSTEOPENIA
     Dosage: 5 MG, UNK
     Route: 048
     Dates: start: 20010401, end: 20011201
  6. MULTI-VITAMINS [Concomitant]
     Dosage: 1 DF, UNK
     Dates: start: 20070101
  7. ACTONEL [Suspect]
     Dosage: 30 MG, UNK
     Route: 048
     Dates: start: 20030301, end: 20040301
  8. FEMHRT [Concomitant]
     Indication: HORMONE REPLACEMENT THERAPY
     Dosage: 1MG/5
     Route: 048
     Dates: start: 20030101
  9. ACTONEL [Suspect]
     Dosage: 30 MG, UNK
     Route: 048
     Dates: start: 20011201, end: 20020301
  10. ACTONEL [Suspect]
     Dosage: 5 MG, UNK
     Route: 048
     Dates: start: 20020301, end: 20030301
  11. ACTONEL [Suspect]
     Dosage: 35 MG, UNK
     Route: 048
     Dates: start: 20040301, end: 20050401

REACTIONS (36)
  - STRESS URINARY INCONTINENCE [None]
  - SPINAL CORD DISORDER [None]
  - CARPAL TUNNEL SYNDROME [None]
  - CELLULITIS [None]
  - COLONIC POLYP [None]
  - ALOPECIA [None]
  - ASTHMA [None]
  - BENIGN NEOPLASM OF SPINAL CORD [None]
  - NECK PAIN [None]
  - LOW TURNOVER OSTEOPATHY [None]
  - ATYPICAL FEMUR FRACTURE [None]
  - SINUS DISORDER [None]
  - ANXIETY [None]
  - BLOOD CHOLESTEROL INCREASED [None]
  - COUGH [None]
  - MUSCLE SPASMS [None]
  - VAGINAL INFECTION [None]
  - INTERVERTEBRAL DISC PROTRUSION [None]
  - BACK PAIN [None]
  - FUNGAL INFECTION [None]
  - ATROPHIC VULVOVAGINITIS [None]
  - ROAD TRAFFIC ACCIDENT [None]
  - JOINT SWELLING [None]
  - FALL [None]
  - FLUID RETENTION [None]
  - GAIT DISTURBANCE [None]
  - WOUND DEHISCENCE [None]
  - FEMUR FRACTURE [None]
  - TOOTH DISORDER [None]
  - DYSPAREUNIA [None]
  - GOITRE [None]
  - MYELOPATHY [None]
  - CYST [None]
  - SEASONAL ALLERGY [None]
  - TENDONITIS [None]
  - HAEMORRHOIDS [None]
